FAERS Safety Report 11038553 (Version 1)
Quarter: 2015Q2

REPORT INFORMATION
  Report Type: Spontaneous
  Country: US (occurrence: None)
  Receive Date: 20150415
  Receipt Date: 20150415
  Transmission Date: 20150821
  Serious: Yes (Life-Threatening, Disabling, Other)
  Sender: FDA-Public Use
  Company Number: None

PATIENT
  Age: 76 Year
  Sex: Male
  Weight: 114.31 kg

DRUGS (11)
  1. PRADAXA [Suspect]
     Active Substance: DABIGATRAN ETEXILATE MESYLATE
     Indication: ATRIAL FIBRILLATION
     Route: 048
  2. DIGOXIN (LANOXIN) [Concomitant]
  3. ATORVASTATIN [Concomitant]
     Active Substance: ATORVASTATIN
  4. OT NIASIN SA [Concomitant]
  5. OTC RED RICEYEAST [Concomitant]
  6. OTC ASPIRIN [Concomitant]
  7. LISINOPRIL. [Concomitant]
     Active Substance: LISINOPRIL
  8. OMEPRAZOLE. [Concomitant]
     Active Substance: OMEPRAZOLE
  9. TAMSULOSIN [Concomitant]
     Active Substance: TAMSULOSIN
  10. OTC FLAXSEED [Concomitant]
  11. METOPROLOL [Concomitant]
     Active Substance: METOPROLOL

REACTIONS (2)
  - Ischaemic stroke [None]
  - Atrial fibrillation [None]

NARRATIVE: CASE EVENT DATE: 20150121
